FAERS Safety Report 21642546 (Version 1)
Quarter: 2022Q4

REPORT INFORMATION
  Report Type: Spontaneous
  Country: CZ (occurrence: CZ)
  Receive Date: 20221125
  Receipt Date: 20221125
  Transmission Date: 20230113
  Serious: Yes (Other)
  Sender: FDA-Public Use
  Company Number: CZ-BIOGEN-2022BI01171097

PATIENT
  Sex: Female

DRUGS (14)
  1. TYSABRI [Suspect]
     Active Substance: NATALIZUMAB
     Indication: Multiple sclerosis
     Dosage: FIRST INFUSION ON 19 JUL 2011, LAST INFUSION 17 AUG 2022, 121 INFUSIONS, 300MG, IV EXCEPT 07 APR ...
     Route: 050
     Dates: start: 20110719, end: 20220817
  2. TYSABRI [Suspect]
     Active Substance: NATALIZUMAB
     Dosage: FIRST INFUSION ON 19 JUL 2011, LAST INFUSION 17 AUG 2022, 121 INFUSIONS, 300MG, IV EXCEPT 07 APR ...
     Route: 050
  3. TYSABRI [Suspect]
     Active Substance: NATALIZUMAB
     Dosage: FIRST INFUSION ON 19 JUL 2011, LAST INFUSION 17 AUG 2022, 121 INFUSIONS, 300MG, IV EXCEPT 07 APR ...
     Route: 050
  4. TRAZODONE HYDROCHLORIDE [Concomitant]
     Active Substance: TRAZODONE HYDROCHLORIDE
     Indication: Product used for unknown indication
     Route: 050
  5. TRAZODONE HYDROCHLORIDE [Concomitant]
     Active Substance: TRAZODONE HYDROCHLORIDE
     Dosage: AT A FREQUENCY OF 0-0-0-1
     Route: 050
  6. Kanavit [Concomitant]
     Indication: Product used for unknown indication
     Dosage: 20 MG/ML?0 - 15 DROPS - 0
     Route: 050
  7. RIFAXIMIN [Concomitant]
     Active Substance: RIFAXIMIN
     Indication: Product used for unknown indication
     Dosage: 2-2-2
     Route: 050
  8. CONTROLOC [Concomitant]
     Active Substance: PANTOPRAZOLE SODIUM
     Indication: Product used for unknown indication
     Route: 050
  9. PREDNISONE [Concomitant]
     Active Substance: PREDNISONE
     Indication: Product used for unknown indication
     Dosage: AT A FREQUENCY OF 2-0-0.
     Route: 050
  10. BACLOFEN [Concomitant]
     Active Substance: BACLOFEN
     Indication: Product used for unknown indication
     Dosage: AT A FREQUENCY OF 1-1-0.
     Route: 050
  11. TIZANIDINE [Concomitant]
     Active Substance: TIZANIDINE
     Indication: Product used for unknown indication
     Dosage: AT A FREQUENCY OF 0-0-0-1.
     Route: 050
  12. nalgesin [Concomitant]
     Indication: Headache
     Dosage: 1-2 TABLETS DAILY AS NEEDED FOR HEADACHE.
     Route: 050
  13. MAGNESIUM CARBONATE\MAGNESIUM OXIDE [Concomitant]
     Active Substance: MAGNESIUM CARBONATE\MAGNESIUM OXIDE
     Indication: Product used for unknown indication
     Dosage: AT A FREQUENCY OF 1 X 1
     Route: 050
  14. BRINTELLIX [Concomitant]
     Active Substance: VORTIOXETINE HYDROBROMIDE
     Indication: Product used for unknown indication
     Route: 050

REACTIONS (1)
  - Lateral patellar compression syndrome [Unknown]

NARRATIVE: CASE EVENT DATE: 20180101
